FAERS Safety Report 5835400-6 (Version None)
Quarter: 2008Q3

REPORT INFORMATION
  Report Type: 
  Country: None (occurrence: None)
  Receive Date: 20080806
  Receipt Date: 20080801
  Transmission Date: 20090109
  Serious: Yes (Hospitalization)
  Sender: FDA-Public Use
  Company Number: JP-AVENTIS-200812409JP

PATIENT
  Age: 58 Year
  Sex: Male

DRUGS (18)
  1. LANTUS [Suspect]
     Dosage: DOSE: 4 UNITS
     Route: 058
     Dates: start: 20080502, end: 20080519
  2. OPTICLIK (INSULIN INJECTION PEN) [Suspect]
  3. HUMALIN [Concomitant]
     Dosage: DOSE: 4-2-2 UNITS
     Dates: start: 20080422, end: 20080428
  4. HUMALIN [Concomitant]
     Dosage: DOSE: 4-4-2 UNITS
     Dates: start: 20080429, end: 20080501
  5. HUMALIN [Concomitant]
     Dosage: DOSE: 6-2-2 UNITS
     Dates: start: 20080502, end: 20080507
  6. HUMALIN [Concomitant]
     Dosage: DOSE: 4-4-2 UNITS
     Dates: start: 20080508
  7. HUMALIN [Concomitant]
     Dosage: DOSE: 2-4-2 UNITS
     Dates: start: 20080513, end: 20080517
  8. HUMALIN [Concomitant]
     Dosage: DOSE: 4-2-2 UNITS
     Dates: start: 20080518, end: 20080519
  9. HUMALIN [Concomitant]
     Dosage: DOSE: 3-3-2 UNITS
     Dates: start: 20080520, end: 20080520
  10. HUMALIN [Concomitant]
     Dosage: DOSE: 3-5-2 UNITS
     Dates: start: 20080527
  11. HUMALIN [Concomitant]
     Dosage: DOSE: 4 UNITS
     Dates: start: 20080422, end: 20080501
  12. HUMALIN [Concomitant]
     Dosage: DOSE: 4 UNITS
     Dates: start: 20080520, end: 20080520
  13. HUMALIN [Concomitant]
     Dosage: DOSE: 4 UNITS
     Dates: start: 20080527
  14. PRAVASTATIN [Concomitant]
     Indication: HYPERCHOLESTEROLAEMIA
     Route: 048
  15. BAYASPIRIN [Concomitant]
     Route: 048
  16. TERNELIN [Concomitant]
     Route: 048
  17. HALCION [Concomitant]
     Indication: INSOMNIA
     Route: 048
  18. GASMOTIN [Concomitant]
     Route: 048
     Dates: start: 20080421

REACTIONS (1)
  - LIVER DISORDER [None]
